FAERS Safety Report 19805976 (Version 1)
Quarter: 2021Q3

REPORT INFORMATION
  Report Type: Spontaneous
  Country: US (occurrence: US)
  Receive Date: 20210909
  Receipt Date: 20210909
  Transmission Date: 20211014
  Serious: No
  Sender: FDA-Public Use
  Company Number: US-SA-2021SA292966

PATIENT

DRUGS (4)
  1. LIBTAYO [CEMIPLIMAB] [Concomitant]
  2. CAMPATH [Concomitant]
     Active Substance: ALEMTUZUMAB
  3. SARCLISA [ISATUXIMAB] [Concomitant]
  4. ELITEK [Suspect]
     Active Substance: RASBURICASE
     Dosage: UNK

REACTIONS (1)
  - Product storage error [Unknown]
